FAERS Safety Report 21064189 (Version 1)
Quarter: 2022Q3

REPORT INFORMATION
  Report Type: Spontaneous
  Country: US (occurrence: None)
  Receive Date: 20220708
  Receipt Date: 20220708
  Transmission Date: 20221027
  Serious: No
  Sender: FDA-Public Use
  Company Number: None

PATIENT
  Age: 72 Year
  Sex: Female

DRUGS (1)
  1. EVEROLIMUS [Suspect]
     Active Substance: EVEROLIMUS
     Dosage: 7.5MG DAILY ORAL?
     Route: 048
     Dates: end: 202206

REACTIONS (5)
  - Pleural effusion [None]
  - Cellulitis [None]
  - Peripheral swelling [None]
  - Peripheral swelling [None]
  - Dyspnoea [None]

NARRATIVE: CASE EVENT DATE: 20220617
